FAERS Safety Report 6015727-8 (Version None)
Quarter: 2008Q4

REPORT INFORMATION
  Report Type: 
  Country: None (occurrence: None)
  Receive Date: 20081222
  Receipt Date: 20081218
  Transmission Date: 20090506
  Serious: Yes (Hospitalization)
  Sender: FDA-Public Use
  Company Number: SE-ASTRAZENECA-2008SE05697

PATIENT
  Age: 81 Year
  Sex: Male

DRUGS (9)
  1. SELOKEN ZOC [Suspect]
     Indication: CARDIAC FAILURE
     Route: 048
  2. ACETAMINOPHEN [Concomitant]
     Route: 048
  3. BRICANYL [Concomitant]
  4. LASIX [Concomitant]
     Route: 048
  5. PULMICORT-100 [Concomitant]
     Route: 055
  6. TROMBYL [Concomitant]
     Route: 048
  7. COZAAR [Concomitant]
     Route: 048
  8. PERSANTINE [Concomitant]
     Route: 048
  9. NOVONORM [Concomitant]
     Route: 048

REACTIONS (2)
  - ATRIOVENTRICULAR BLOCK [None]
  - BRADYCARDIA [None]
